FAERS Safety Report 14193951 (Version 1)
Quarter: 2017Q4

REPORT INFORMATION
  Report Type: Spontaneous
  Country: FR (occurrence: FR)
  Receive Date: 20171116
  Receipt Date: 20171116
  Transmission Date: 20180321
  Serious: Yes (Other)
  Sender: FDA-Public Use
  Company Number: FR-MERCK KGAA-2034227

PATIENT
  Sex: Female

DRUGS (1)
  1. NOVOTHYROX [Suspect]
     Active Substance: LEVOTHYROXINE SODIUM
     Indication: POST PROCEDURAL HYPOTHYROIDISM

REACTIONS (8)
  - Gastrointestinal disorder [None]
  - Incorrect dosage administered [None]
  - Hyperthyroidism [None]
  - Migraine [None]
  - Arthralgia [None]
  - Alopecia [None]
  - Hypothyroidism [None]
  - Vertigo [None]
